FAERS Safety Report 12370704 (Version 1)
Quarter: 2016Q2

REPORT INFORMATION
  Report Type: Spontaneous
  Country: US (occurrence: US)
  Receive Date: 20160516
  Receipt Date: 20160516
  Transmission Date: 20160815
  Serious: Yes (Death)
  Sender: FDA-Public Use
  Company Number: US-ROCHE-1758165

PATIENT
  Age: 56 Year
  Sex: Male

DRUGS (1)
  1. ZELBORAF [Suspect]
     Active Substance: VEMURAFENIB
     Indication: CHRONIC LYMPHOCYTIC LEUKAEMIA
     Dosage: 240MG 2TABS EVERY 12HRS
     Route: 048
     Dates: start: 20150611, end: 20150703

REACTIONS (1)
  - Death [Fatal]
